FAERS Safety Report 9217773 (Version 1)
Quarter: 2013Q2

REPORT INFORMATION
  Report Type: Spontaneous
  Country: IT (occurrence: IT)
  Receive Date: 20130408
  Receipt Date: 20130408
  Transmission Date: 20140414
  Serious: Yes (Death, Hospitalization)
  Sender: FDA-Public Use
  Company Number: IT-BAYER-2013-043516

PATIENT
  Age: 80 Year
  Sex: Female

DRUGS (2)
  1. CARDIOASPIRIN [Suspect]
     Indication: PROPHYLAXIS
     Dosage: 100 MG, QD
     Route: 048
     Dates: start: 20030318, end: 20130318
  2. NORVASC [Concomitant]

REACTIONS (1)
  - Subdural haematoma [Fatal]
